FAERS Safety Report 17686291 (Version 1)
Quarter: 2020Q2

REPORT INFORMATION
  Report Type: Spontaneous
  Country: US (occurrence: US)
  Receive Date: 20200420
  Receipt Date: 20200420
  Transmission Date: 20200714
  Serious: No
  Sender: FDA-Public Use
  Company Number: US-TEVA-2020-US-1221858

PATIENT
  Age: 53 Year
  Sex: Female

DRUGS (2)
  1. TRAZODONE HYDROCHLORIDE TEVA [Suspect]
     Active Substance: TRAZODONE HYDROCHLORIDE
     Indication: INSOMNIA
     Route: 065
  2. TRAZODONE HYDROCHLORIDE TEVA [Suspect]
     Active Substance: TRAZODONE HYDROCHLORIDE
     Indication: MENOPAUSE

REACTIONS (3)
  - Rash [Unknown]
  - Back pain [Unknown]
  - Abdominal pain upper [Unknown]
